FAERS Safety Report 16588931 (Version 2)
Quarter: 2019Q4

REPORT INFORMATION
  Report Type: Spontaneous
  Country: FR (occurrence: FR)
  Receive Date: 20190718
  Receipt Date: 20191216
  Transmission Date: 20200122
  Serious: Yes (Hospitalization, Other)
  Sender: FDA-Public Use
  Company Number: FR-JAZZ-2019-FR-009596

PATIENT

DRUGS (9)
  1. VALACYCLOVIR [Suspect]
     Active Substance: VALACYCLOVIR HYDROCHLORIDE
     Indication: ANTIVIRAL TREATMENT
     Dosage: 1000 MG, QD (1-0-1)
     Route: 048
     Dates: start: 20190523
  2. PIPERACILLINE TAZOBACTAM MYLAN [Suspect]
     Active Substance: PIPERACILLIN SODIUM\TAZOBACTAM SODIUM
     Indication: INFECTION
     Route: 042
     Dates: start: 20190526, end: 20190621
  3. EXJADE [Suspect]
     Active Substance: DEFERASIROX
     Indication: IRON OVERLOAD
     Dosage: 1-0-1
     Route: 048
     Dates: end: 20190525
  4. EXJADE [Suspect]
     Active Substance: DEFERASIROX
     Dosage: 1-0-1
     Route: 048
     Dates: start: 20190606, end: 20190616
  5. NOXAFIL [Suspect]
     Active Substance: POSACONAZOLE
     Indication: FUNGAL INFECTION
     Dosage: 300 MG, QD (3-0-0)
     Route: 048
     Dates: start: 20190528, end: 20190621
  6. VYXEOS [Suspect]
     Active Substance: CYTARABINE\DAUNORUBICIN
     Indication: ACUTE MYELOID LEUKAEMIA
     Dosage: 86/195 MG PERF DE 90MIN ? J1, J3, J5 ; CYCLICAL
     Route: 042
     Dates: start: 20190524, end: 20190528
  7. CRESTOR [Concomitant]
     Active Substance: ROSUVASTATIN CALCIUM
     Indication: HYPERCHOLESTEROLAEMIA
     Dosage: 5 MG, QD
     Route: 048
     Dates: end: 20190522
  8. FLUCONAZOLE ARROW 200 MG, G?LULE [Suspect]
     Active Substance: FLUCONAZOLE
     Indication: FUNGAL INFECTION
     Dosage: 400 MG, QD (2-0-0)
     Route: 048
     Dates: start: 20190524, end: 20190527
  9. ATORVASTATINE ARROW 40 MG, COMPRIM? PELLICUL? [Suspect]
     Active Substance: ATORVASTATIN
     Indication: HYPERCHOLESTEROLAEMIA
     Dosage: 0-0-1
     Route: 048
     Dates: start: 20190522, end: 20190619

REACTIONS (3)
  - Cholestasis [Recovering/Resolving]
  - Hepatocellular injury [Recovering/Resolving]
  - Condition aggravated [Recovering/Resolving]

NARRATIVE: CASE EVENT DATE: 20190530
